FAERS Safety Report 18962393 (Version 4)
Quarter: 2021Q2

REPORT INFORMATION
  Report Type: Spontaneous
  Country: AU (occurrence: AU)
  Receive Date: 20210303
  Receipt Date: 20210503
  Transmission Date: 20210717
  Serious: Yes (Hospitalization)
  Sender: FDA-Public Use
  Company Number: AU-MYLANLABS-2021M1012156

PATIENT
  Age: 23 Year
  Sex: Male

DRUGS (3)
  1. CLOZARIL [Suspect]
     Active Substance: CLOZAPINE
     Dosage: UNK
     Route: 048
     Dates: start: 20170112
  2. CLOZARIL [Suspect]
     Active Substance: CLOZAPINE
     Dosage: 150 MILLIGRAM
     Route: 048
  3. CLOZARIL [Suspect]
     Active Substance: CLOZAPINE
     Indication: SCHIZOPHRENIA
     Dosage: 37.5 MILLIGRAM
     Route: 048
     Dates: start: 20170112

REACTIONS (3)
  - Product dose omission issue [Unknown]
  - Treatment noncompliance [Recovered/Resolved]
  - Antipsychotic drug level decreased [Unknown]

NARRATIVE: CASE EVENT DATE: 20210417
